FAERS Safety Report 14700605 (Version 1)
Quarter: 2018Q1

REPORT INFORMATION
  Report Type: Report from Study
  Country: US (occurrence: US)
  Receive Date: 20180330
  Receipt Date: 20180330
  Transmission Date: 20180509
  Serious: No
  Sender: FDA-Public Use
  Company Number: PHEH2018US012101

PATIENT
  Age: 14 Year
  Sex: Female

DRUGS (2)
  1. GLEEVEC [Suspect]
     Active Substance: IMATINIB MESYLATE
     Dosage: UNK
     Route: 065
     Dates: start: 201803
  2. GLEEVEC [Suspect]
     Active Substance: IMATINIB MESYLATE
     Indication: FIBROMATOSIS
     Dosage: 200 MG, BID
     Route: 065
     Dates: start: 201706, end: 201710

REACTIONS (2)
  - Dysmenorrhoea [Unknown]
  - Menorrhagia [Unknown]
